FAERS Safety Report 11666979 (Version 1)
Quarter: 2015Q4

REPORT INFORMATION
  Report Type: Spontaneous
  Country: US (occurrence: US)
  Receive Date: 20151027
  Receipt Date: 20151027
  Transmission Date: 20160304
  Serious: No
  Sender: FDA-Public Use
  Company Number: US-ELI_LILLY_AND_COMPANY-US201002003811

PATIENT
  Age: 85 Year
  Sex: Male

DRUGS (2)
  1. FORTEO [Suspect]
     Active Substance: TERIPARATIDE
     Indication: SPINAL FRACTURE
     Dosage: 20 UG, DAILY (1/D)
     Dates: start: 20100112, end: 201002
  2. FORTEO [Suspect]
     Active Substance: TERIPARATIDE
     Dosage: 20 UG, DAILY (1/D)
     Dates: start: 201002

REACTIONS (6)
  - Rash [Unknown]
  - Off label use [Not Recovered/Not Resolved]
  - Cough [Unknown]
  - Medication error [Unknown]
  - Musculoskeletal stiffness [Unknown]
  - Dry skin [Unknown]

NARRATIVE: CASE EVENT DATE: 20100112
